FAERS Safety Report 7248484-8 (Version None)
Quarter: 2011Q1

REPORT INFORMATION
  Report Type: 
  Country: None (occurrence: None)
  Receive Date: 20110127
  Receipt Date: 20110118
  Transmission Date: 20110831
  Serious: Yes (Other)
  Sender: FDA-Public Use
  Company Number: US-AMGEN-USASP2011003248

PATIENT
  Age: 56 Year
  Sex: Female

DRUGS (1)
  1. ENBREL [Suspect]
     Indication: RHEUMATOID ARTHRITIS
     Dosage: 50 MG, QWK
     Dates: start: 20081201

REACTIONS (9)
  - STAPHYLOCOCCAL SKIN INFECTION [None]
  - ADRENAL DISORDER [None]
  - BLOOD OESTROGEN DECREASED [None]
  - HYPOTENSION [None]
  - ALOPECIA [None]
  - FATIGUE [None]
  - RHINITIS ALLERGIC [None]
  - SKIN ULCER [None]
  - BLOOD TESTOSTERONE DECREASED [None]
